FAERS Safety Report 23056757 (Version 1)
Quarter: 2023Q4

REPORT INFORMATION
  Report Type: Spontaneous
  Country: US (occurrence: US)
  Receive Date: 20231012
  Receipt Date: 20231012
  Transmission Date: 20240110
  Serious: Yes (Other)
  Sender: FDA-Public Use
  Company Number: US-ROCHE-2503032

PATIENT
  Age: 53 Year
  Sex: Female
  Weight: 97.155 kg

DRUGS (23)
  1. CLONAZEPAM [Suspect]
     Active Substance: CLONAZEPAM
     Indication: Product used for unknown indication
     Dosage: 1 MG
     Route: 048
  2. RITUXIMAB [Suspect]
     Active Substance: RITUXIMAB
     Dosage: 100 MG/10ML, JUNE- JULY 2017 X 4 ONCE A WEEK
     Route: 042
  3. MYCOPHENOLATE MOFETIL [Suspect]
     Active Substance: MYCOPHENOLATE MOFETIL
     Indication: Polyarthritis
     Dosage: 1000 MG, BID
     Route: 048
  4. MYCOPHENOLATE MOFETIL [Suspect]
     Active Substance: MYCOPHENOLATE MOFETIL
     Indication: Arteritis
     Dosage: 1000 MG, BID
     Route: 048
  5. MYCOPHENOLATE MOFETIL [Suspect]
     Active Substance: MYCOPHENOLATE MOFETIL
     Indication: Granulomatosis with polyangiitis
     Dosage: 1000 MG, BID
     Route: 048
  6. OMALIZUMAB [Suspect]
     Active Substance: OMALIZUMAB
  7. PREDNISONE [Concomitant]
     Active Substance: PREDNISONE
     Dosage: 10 MG, DAILY
     Route: 048
  8. QUETIAPINE FUMARATE [Concomitant]
     Active Substance: QUETIAPINE FUMARATE
     Dosage: 25 MG
     Route: 048
  9. FOLIC ACID [Concomitant]
     Active Substance: FOLIC ACID
     Dosage: 1 MG
     Route: 048
  10. METHOTREXATE [Concomitant]
     Active Substance: METHOTREXATE
     Dosage: 2.5 MG, DAILY
     Route: 048
  11. MONTELUKAST [Concomitant]
     Active Substance: MONTELUKAST SODIUM
     Dosage: 10 MG, DAILY
     Route: 048
  12. MAGNESIUM [Concomitant]
     Active Substance: MAGNESIUM
     Dosage: 250 MG, DAILY
     Route: 048
  13. ROPINIROLE [Concomitant]
     Active Substance: ROPINIROLE
     Dosage: 1 MG
     Route: 048
  14. GABAPENTIN [Concomitant]
     Active Substance: GABAPENTIN
     Dosage: 1800 MG, DAILY
     Route: 048
  15. CETIRIZINE [Concomitant]
     Active Substance: CETIRIZINE HYDROCHLORIDE
     Dosage: 10 MG
     Route: 048
  16. MIRTAZAPINE [Concomitant]
     Active Substance: MIRTAZAPINE
     Dosage: 45 MG
     Route: 048
  17. RANITIDINE HYDROCHLORIDE [Concomitant]
     Active Substance: RANITIDINE HYDROCHLORIDE
     Dosage: 150 MG
     Route: 048
  18. ESOMEPRAZOLE [Concomitant]
     Active Substance: ESOMEPRAZOLE
     Dosage: 40 MG
     Route: 048
  19. SUMATRIPTAN [Concomitant]
     Active Substance: SUMATRIPTAN
  20. EPINEPHRINE [Concomitant]
     Active Substance: EPINEPHRINE
     Dosage: 0.15 MG/ 0.3 ML (1:2000), DEVICE
     Route: 030
  21. PROAIR HFA [Concomitant]
     Active Substance: ALBUTEROL SULFATE
     Dosage: (108 (90 BASE) MCG/ACT AEROSOL SOLUTION, INHALATION
     Route: 055
  22. HYDROXYCHLOROQUINE SULFATE [Concomitant]
     Active Substance: HYDROXYCHLOROQUINE SULFATE
     Route: 048
  23. ALBUTEROL SULFATE [Concomitant]
     Active Substance: ALBUTEROL SULFATE
     Dosage: ((2.5 MG/2 ML) 0.083% NEBULIZED SOLUTION, INHALATION
     Route: 055

REACTIONS (36)
  - Vasculitic ulcer [Unknown]
  - Diarrhoea [Unknown]
  - Dizziness [Unknown]
  - Loss of consciousness [Unknown]
  - Musculoskeletal stiffness [Unknown]
  - Peripheral swelling [Unknown]
  - Pain [Unknown]
  - Memory impairment [Unknown]
  - Fatigue [Unknown]
  - Dysarthria [Unknown]
  - Decreased activity [Unknown]
  - Gait inability [Unknown]
  - C-reactive protein increased [Unknown]
  - Rash [Unknown]
  - Pain [Unknown]
  - Weight increased [Unknown]
  - Pustule [Unknown]
  - Dyspnoea [Unknown]
  - Stomatitis [Unknown]
  - Vulvovaginal rash [Unknown]
  - Headache [Unknown]
  - Tinnitus [Unknown]
  - Feeling hot [Unknown]
  - Decreased appetite [Unknown]
  - Nausea [Unknown]
  - Tremor [Unknown]
  - Coordination abnormal [Unknown]
  - Paraesthesia [Unknown]
  - Hypoaesthesia [Unknown]
  - Stress fracture [Unknown]
  - Pain in extremity [Unknown]
  - Somnolence [Unknown]
  - Fall [Unknown]
  - Asthenia [Unknown]
  - Brain fog [Unknown]
  - Drug hypersensitivity [Unknown]

NARRATIVE: CASE EVENT DATE: 20201201
